FAERS Safety Report 12650173 (Version 1)
Quarter: 2016Q3

REPORT INFORMATION
  Report Type: Spontaneous
  Country: NL (occurrence: NL)
  Receive Date: 20160813
  Receipt Date: 20160813
  Transmission Date: 20161109
  Serious: Yes (Other)
  Sender: FDA-Public Use
  Company Number: NL-TEVA-684032ACC

PATIENT
  Age: 59 Year
  Sex: Female
  Weight: 70 kg

DRUGS (1)
  1. METHOTREXATE (METHOTREXATE SODIUM) [Suspect]
     Active Substance: METHOTREXATE SODIUM
     Indication: RHEUMATOID ARTHRITIS
     Dosage: 1 TIME PER WEEK 8 PIECES
     Route: 048
     Dates: start: 20120410

REACTIONS (2)
  - Palpitations [Unknown]
  - Arrhythmia [Unknown]

NARRATIVE: CASE EVENT DATE: 20160304
